FAERS Safety Report 13159809 (Version 1)
Quarter: 2017Q1

REPORT INFORMATION
  Report Type: Spontaneous
  Country: ES (occurrence: ES)
  Receive Date: 20170127
  Receipt Date: 20170127
  Transmission Date: 20170428
  Serious: Yes (Other)
  Sender: FDA-Public Use
  Company Number: ES-MYLANLABS-2017M1004607

PATIENT

DRUGS (1)
  1. CELECOXIB MYLAN PHARMACEUTICALS 200 MG C?PSULAS DURAS EFG. [Suspect]
     Active Substance: CELECOXIB
     Indication: FIBROMYALGIA
     Dosage: 200 MG, QD
     Route: 048
     Dates: start: 20161221, end: 20161231

REACTIONS (3)
  - Blister [Recovering/Resolving]
  - Oedema peripheral [Recovering/Resolving]
  - Panniculitis [Recovering/Resolving]

NARRATIVE: CASE EVENT DATE: 201612
